FAERS Safety Report 12517472 (Version 1)
Quarter: 2016Q2

REPORT INFORMATION
  Report Type: Spontaneous
  Country: TR (occurrence: TR)
  Receive Date: 20160630
  Receipt Date: 20160630
  Transmission Date: 20160815
  Serious: Yes (Hospitalization)
  Sender: FDA-Public Use
  Company Number: TR-FTV20150508-01_FDAV1

PATIENT
  Age: 27 Year
  Sex: Male
  Weight: 60 kg

DRUGS (1)
  1. FACTIVE [Suspect]
     Active Substance: GEMIFLOXACIN MESYLATE
     Indication: BRONCHITIS
     Route: 048
     Dates: start: 20150320, end: 20150328

REACTIONS (5)
  - Drug dose omission [None]
  - Pruritus [Recovering/Resolving]
  - No therapeutic response [None]
  - Dermatitis allergic [Recovering/Resolving]
  - Rash pustular [Recovering/Resolving]

NARRATIVE: CASE EVENT DATE: 20150328
